FAERS Safety Report 8225403-9 (Version None)
Quarter: 2012Q1

REPORT INFORMATION
  Report Type: 
  Country: None (occurrence: None)
  Receive Date: 20120307
  Receipt Date: 20110324
  Transmission Date: 20120608
  Serious: No
  Sender: FDA-Public Use
  Company Number: PHHY2011US24903

PATIENT
  Age: 15 Year
  Sex: Female

DRUGS (4)
  1. BENZOCLENE GEL [Concomitant]
  2. DILANTIN [Concomitant]
  3. CLONAZEPAM [Concomitant]
  4. AFINITOR [Suspect]
     Indication: ASTROCYTOMA
     Dosage: 05 MG, DAILY, ORAL
     Route: 048
     Dates: start: 20110313

REACTIONS (2)
  - TONGUE ULCERATION [None]
  - FATIGUE [None]
